FAERS Safety Report 4517692-9 (Version None)
Quarter: 2004Q4

REPORT INFORMATION
  Report Type: 
  Country: None (occurrence: None)
  Receive Date: 20041130
  Receipt Date: 20041115
  Transmission Date: 20050328
  Serious: Yes (Death, Hospitalization)
  Sender: FDA-Public Use
  Company Number: A03200403248

PATIENT
  Age: 79 Year
  Sex: Female
  Weight: 97.0698 kg

DRUGS (8)
  1. PLAVIX [Suspect]
     Indication: ANGINA UNSTABLE
     Dosage: 75 MG QD ORAL
     Route: 048
     Dates: start: 20040710
  2. PLAVIX [Suspect]
     Indication: CORONARY ARTERY DISEASE
     Dosage: 75 MG QD ORAL
     Route: 048
     Dates: start: 20040710
  3. LOSARTAN/HYDROCHLOROTHIAZIDE [Concomitant]
  4. NITROGLYCERIN [Concomitant]
  5. VITAMIN E [Concomitant]
  6. ATORVASTATIN [Concomitant]
  7. METOPROLOL SUCCINATE [Concomitant]
  8. OMEGA-3 TRIGLYCERIDES [Concomitant]

REACTIONS (14)
  - ACUTE RESPIRATORY DISTRESS SYNDROME [None]
  - ALANINE AMINOTRANSFERASE INCREASED [None]
  - ASPARTATE AMINOTRANSFERASE INCREASED [None]
  - BAND NEUTROPHIL COUNT INCREASED [None]
  - BRADYCARDIA [None]
  - DIFFUSE ALVEOLAR DAMAGE [None]
  - HYPOTENSION [None]
  - LETHARGY [None]
  - NEUTROPHIL COUNT DECREASED [None]
  - PNEUMONIA [None]
  - PULMONARY FIBROSIS [None]
  - SEPSIS [None]
  - SYNCOPE [None]
  - WHITE BLOOD CELL COUNT DECREASED [None]
